FAERS Safety Report 6405257-3 (Version None)
Quarter: 2009Q4

REPORT INFORMATION
  Report Type: 
  Country: None (occurrence: None)
  Receive Date: 20091016
  Receipt Date: 20091016
  Transmission Date: 20100525
  Serious: No
  Sender: FDA-Public Use
  Company Number: None

PATIENT
  Age: 78 Year
  Sex: Female
  Weight: 71.2147 kg

DRUGS (2)
  1. ULORIC [Suspect]
     Indication: BLOOD URIC ACID ABNORMAL
     Dosage: 40MG CUT IN HALF (20) 1 DAILY BY MOUTH
     Route: 048
     Dates: start: 20090414, end: 20091009
  2. ULORIC [Suspect]
     Indication: RENAL DISORDER
     Dosage: 40MG CUT IN HALF (20) 1 DAILY BY MOUTH
     Route: 048
     Dates: start: 20090414, end: 20091009

REACTIONS (5)
  - ARTHRALGIA [None]
  - ASTHENIA [None]
  - BONE PAIN [None]
  - FATIGUE [None]
  - GAIT DISTURBANCE [None]
